FAERS Safety Report 4664447-0 (Version None)
Quarter: 2005Q2

REPORT INFORMATION
  Report Type: 
  Country: None (occurrence: None)
  Receive Date: 20050518
  Receipt Date: 20050510
  Transmission Date: 20051028
  Serious: Yes (Other)
  Sender: FDA-Public Use
  Company Number: JP-JNJFOC-20041005651

PATIENT
  Sex: Female
  Weight: 41.5 kg

DRUGS (15)
  1. REMICADE [Suspect]
     Route: 042
  2. REMICADE [Suspect]
     Route: 042
  3. REMICADE [Suspect]
     Route: 042
  4. REMICADE [Suspect]
     Route: 042
  5. REMICADE [Suspect]
     Route: 042
  6. REMICADE [Suspect]
     Route: 042
  7. REMICADE [Suspect]
     Route: 042
  8. REMICADE [Suspect]
     Indication: CROHN'S DISEASE
     Route: 042
  9. LEUKERAN [Suspect]
     Route: 049
  10. LEUKERAN [Suspect]
     Indication: CROHN'S DISEASE
     Route: 049
  11. LEUKERIN [Concomitant]
     Indication: CROHN'S DISEASE
     Route: 049
  12. HYDROCORTONE [Concomitant]
     Indication: CROHN'S DISEASE
     Route: 042
  13. PENTASA [Concomitant]
     Indication: CROHN'S DISEASE
     Route: 049
  14. LOPEMIN [Concomitant]
     Indication: CROHN'S DISEASE
     Route: 049
  15. ENTERAL NUTRITION [Concomitant]

REACTIONS (2)
  - ANAEMIA [None]
  - PYLORIC STENOSIS [None]
